FAERS Safety Report 9547595 (Version 1)
Quarter: 2013Q3

REPORT INFORMATION
  Report Type: Spontaneous
  Country: US (occurrence: US)
  Receive Date: 20130924
  Receipt Date: 20130924
  Transmission Date: 20140515
  Serious: Yes (Hospitalization)
  Sender: FDA-Public Use
  Company Number: US-BAYER-2013-113953

PATIENT
  Age: 43 Year
  Sex: Female

DRUGS (26)
  1. YAZ [Suspect]
  2. VITAMIN D3 [Concomitant]
     Dosage: DAILY
  3. LORAZEPAM [Concomitant]
     Dosage: 1 MG, ONE TABLET AT BEDTIME
     Route: 048
  4. BACLOFEN [Concomitant]
     Dosage: 10 MG,ONE TABLET THREE TIMES DAILY AND TWO AT BEDTIME
     Route: 048
  5. CALCIUM [CALCIUM] [Concomitant]
     Dosage: 600 MG, TID
  6. CITALOPRAM [Concomitant]
     Dosage: 400 MG, DAILY
     Route: 048
  7. COLACE [Concomitant]
     Dosage: 100 MG, BID
  8. FIBERCON [Concomitant]
     Dosage: UNK UNK, BID
  9. CYCLOBENZAPRINE [Concomitant]
     Dosage: 10 MG, TID
     Route: 048
  10. LEVOTHYROXIN [Concomitant]
     Dosage: 0.125 MG, DAILY
     Route: 048
  11. LYRICA [Concomitant]
     Dosage: 100 MG, TID
     Route: 048
  12. LYRICA [Concomitant]
     Dosage: 200 MG, TID
     Route: 048
  13. MIDODRINE [Concomitant]
     Dosage: 5 MG, BID
     Route: 048
  14. ACETAMINOPHEN W/OXYCODONE [Concomitant]
     Dosage: 5-325 MG, 1-2 TABLETS EVERY 6 HOURS AS NEEDED
     Route: 048
  15. SENOKOT [SENNA ALEXANDRINA] [Concomitant]
     Dosage: 8.6 MG, BID
  16. LIDODERM [Concomitant]
     Dosage: 5 %, APPLY ONE PATCH TOPICALLY TO LEFT SIDE OR NECK EVERY 12 HOURS
     Route: 061
  17. ALENDRONATE SODIUM [Concomitant]
     Dosage: 70 MG, TAKE ONE TABLET BY MOUTH ONCE A WEEK AS DIRECTED
     Route: 048
  18. SMZ-TMP DS [Concomitant]
     Dosage: 800-160 MG ONE TABLET TWICE DAILY
     Route: 048
  19. LEVAQUIN [Concomitant]
     Dosage: 500 MG, ONE TABLET EVERY DAY
     Route: 048
  20. ATIVAN [Concomitant]
  21. CELEXA [Concomitant]
  22. FLEXERIL [Concomitant]
  23. FOSAMAX [Concomitant]
  24. LEVOXYL [Concomitant]
  25. PERCOCET [OXYCODONE HYDROCHLORIDE,OXYCODONE TEREPHTHALATE,PARACETA [Concomitant]
  26. DEPO PROVERA [Concomitant]
     Indication: CONTRACEPTION

REACTIONS (3)
  - Deep vein thrombosis [Recovered/Resolved]
  - Pelvic venous thrombosis [Recovered/Resolved]
  - Vena cava thrombosis [Recovered/Resolved]
